FAERS Safety Report 9846014 (Version 1)
Quarter: 2014Q1

REPORT INFORMATION
  Report Type: Spontaneous
  Country: AT (occurrence: AT)
  Receive Date: 20140127
  Receipt Date: 20140127
  Transmission Date: 20141002
  Serious: Yes (Other)
  Sender: FDA-Public Use
  Company Number: PHHY2014AT008052

PATIENT
  Age: 80 Year
  Sex: Male

DRUGS (9)
  1. CIPROFLOXACIN [Suspect]
  2. HYDROCHLOROTHIAZIDE [Concomitant]
  3. FUROSEMIDE [Concomitant]
  4. RIVAROXABAN [Concomitant]
     Indication: ATRIAL FIBRILLATION
     Dosage: 20 MG, DAILY
  5. ENALAPRIL [Concomitant]
  6. ALLOPURINOL [Concomitant]
  7. BISOPROLOL [Concomitant]
  8. SIMVASTATIN [Concomitant]
  9. AMLODIPINE [Concomitant]

REACTIONS (2)
  - Epididymitis [Unknown]
  - Drug ineffective [Unknown]
